FAERS Safety Report 7790909-3 (Version None)
Quarter: 2011Q3

REPORT INFORMATION
  Report Type: 
  Country: None (occurrence: None)
  Receive Date: 20110930
  Receipt Date: 20110921
  Transmission Date: 20111222
  Serious: Yes (Hospitalization, Other)
  Sender: FDA-Public Use
  Company Number: US-ASTRAZENECA-2011SE51788

PATIENT
  Age: 47 Year
  Sex: Female
  Weight: 77.1 kg

DRUGS (13)
  1. SEROQUEL [Suspect]
     Route: 048
  2. SEROQUEL [Suspect]
     Route: 048
  3. SEROQUEL [Suspect]
     Route: 048
  4. IBUPROFEN [Concomitant]
     Indication: PAIN
  5. SEROQUEL [Suspect]
     Indication: POST-TRAUMATIC STRESS DISORDER
     Route: 048
     Dates: start: 20060101
  6. SEROQUEL [Suspect]
     Route: 048
  7. SEROQUEL [Suspect]
     Route: 048
  8. SEROQUEL [Suspect]
     Route: 048
  9. KLONOPIN [Suspect]
     Indication: ANXIETY
     Route: 065
  10. VENTOLIN HFA [Concomitant]
     Indication: ASTHMA
  11. SEROQUEL [Suspect]
     Indication: ANXIETY
     Route: 048
     Dates: start: 20060101
  12. SEROQUEL [Suspect]
     Indication: BIPOLAR DISORDER
     Route: 048
     Dates: start: 20060101
  13. ANEBALEX [Concomitant]
     Indication: BLADDER DISORDER

REACTIONS (17)
  - DISTURBANCE IN ATTENTION [None]
  - MALAISE [None]
  - RESTLESS LEGS SYNDROME [None]
  - ASTHMA [None]
  - MOOD SWINGS [None]
  - INSOMNIA [None]
  - DRUG DOSE OMISSION [None]
  - OVERDOSE [None]
  - DRUG INEFFECTIVE [None]
  - HYPERTONIC BLADDER [None]
  - SUICIDAL IDEATION [None]
  - PAIN [None]
  - AGITATION [None]
  - ANXIETY [None]
  - DISTURBANCE IN SOCIAL BEHAVIOUR [None]
  - INFLUENZA [None]
  - ADVERSE EVENT [None]
